FAERS Safety Report 4323299-9 (Version None)
Quarter: 2004Q1

REPORT INFORMATION
  Report Type: 
  Country: None (occurrence: None)
  Receive Date: 20040323
  Receipt Date: 20040323
  Transmission Date: 20041129
  Serious: Yes (Other)
  Sender: FDA-Public Use
  Company Number: None

PATIENT
  Age: 42 Year
  Sex: Male
  Weight: 70.9 kg

DRUGS (3)
  1. MIRTAZAPINE [Suspect]
     Indication: DEPRESSION
     Dosage: 15 MG , DAILY , ORAL
     Route: 048
     Dates: start: 20031119, end: 20031121
  2. VENLAFAXINE HCL [Suspect]
  3. VENLAFAXINE HCL [Concomitant]

REACTIONS (2)
  - RASH [None]
  - URTICARIA [None]
